FAERS Safety Report 4368827-2 (Version None)
Quarter: 2004Q2

REPORT INFORMATION
  Report Type: 
  Country: None (occurrence: None)
  Receive Date: 20040528
  Receipt Date: 20040510
  Transmission Date: 20050107
  Serious: Yes (Disabling)
  Sender: FDA-Public Use
  Company Number: 2004-116247-NL

PATIENT
  Age: 4 Year

DRUGS (3)
  1. PUREGON [Suspect]
     Route: 064
     Dates: start: 20000101
  2. PROFASI HP [Suspect]
     Route: 064
     Dates: start: 20000101
  3. INSULIN [Suspect]
     Route: 064
     Dates: start: 20000101

REACTIONS (3)
  - AUTISTIC DISORDER [None]
  - MATERNAL DRUGS AFFECTING FOETUS [None]
  - MEDICATION ERROR [None]
